FAERS Safety Report 6320058-2 (Version None)
Quarter: 2009Q3

REPORT INFORMATION
  Report Type: 
  Country: None (occurrence: None)
  Receive Date: 20090822
  Receipt Date: 20081017
  Transmission Date: 20100115
  Serious: No
  Sender: FDA-Public Use
  Company Number: US-ABBOTT-08P-163-0482371-00

PATIENT
  Sex: Male
  Weight: 120 kg

DRUGS (14)
  1. NIASPAN [Suspect]
     Indication: HIGH DENSITY LIPOPROTEIN DECREASED
     Dosage: 500 MG X 2
     Route: 048
     Dates: start: 20080510, end: 20081010
  2. NIASPAN [Suspect]
     Dosage: 500 MG X 2
     Route: 048
     Dates: start: 20081016, end: 20081016
  3. OMNARIS [Concomitant]
     Indication: RHINITIS
     Route: 045
     Dates: start: 20080901
  4. BUDESONIDE W/FORMOTEROL FUMARATE [Concomitant]
     Indication: ASTHMA
     Dosage: TWO PUFFS, 160/4.5 BID
     Dates: start: 20060101
  5. BENZONATATE [Concomitant]
     Indication: DRUG USE FOR UNKNOWN INDICATION
     Dosage: AS REQUIRED
     Route: 048
     Dates: start: 20060101
  6. MORNIFLUMATE [Concomitant]
     Indication: URINE FLOW DECREASED
     Route: 048
     Dates: start: 20081001
  7. FOLIC ACID [Concomitant]
     Indication: DRUG USE FOR UNKNOWN INDICATION
  8. RAMIPRIL [Concomitant]
     Indication: HYPERTENSION
  9. ESCITALOPRAM OXALATE [Concomitant]
     Indication: DEPRESSION
  10. ATENOLOL [Concomitant]
     Indication: BLOOD PRESSURE
  11. CLOPIDOGREL [Concomitant]
     Indication: CARDIAC DISORDER
  12. ASPIRIN [Concomitant]
     Indication: DRUG USE FOR UNKNOWN INDICATION
  13. CENTRUM CARDIO [Concomitant]
     Indication: DRUG USE FOR UNKNOWN INDICATION
  14. ATORVASTATIN CALCIUM [Concomitant]
     Indication: BLOOD CHOLESTEROL
     Route: 048

REACTIONS (5)
  - DYSPNOEA [None]
  - FLUSHING [None]
  - LOSS OF CONSCIOUSNESS [None]
  - PALPITATIONS [None]
  - SKIN BURNING SENSATION [None]
